FAERS Safety Report 6057612-1 (Version None)
Quarter: 2009Q1

REPORT INFORMATION
  Report Type: 
  Country: None (occurrence: None)
  Receive Date: 20090129
  Receipt Date: 20080403
  Transmission Date: 20090719
  Serious: No
  Sender: FDA-Public Use
  Company Number: US-BAUSCH-2008BL001506

PATIENT
  Age: 72 Year
  Sex: Male

DRUGS (6)
  1. FLURBIPROFEN SODIUM [Suspect]
     Indication: OFF LABEL USE
     Route: 047
     Dates: start: 20080311, end: 20080402
  2. FLURBIPROFEN SODIUM [Suspect]
     Indication: MACULAR DEGENERATION
     Route: 047
     Dates: start: 20080311, end: 20080402
  3. FLURBIPROFEN SODIUM [Suspect]
     Route: 047
     Dates: start: 20080403, end: 20080405
  4. FLURBIPROFEN SODIUM [Suspect]
     Route: 047
     Dates: start: 20080403, end: 20080405
  5. MULTIVITAMIN [Concomitant]
     Indication: VITAMIN SUPPLEMENTATION
     Route: 048
     Dates: start: 20040101
  6. LUCENTIS [Concomitant]
     Indication: MACULAR DEGENERATION
     Route: 031
     Dates: start: 20060101

REACTIONS (2)
  - EYE PAIN [None]
  - LACRIMATION INCREASED [None]
